FAERS Safety Report 16569742 (Version 1)
Quarter: 2019Q3

REPORT INFORMATION
  Report Type: Spontaneous
  Country: US (occurrence: US)
  Receive Date: 20190715
  Receipt Date: 20190715
  Transmission Date: 20191004
  Serious: No
  Sender: FDA-Public Use
  Company Number: US-ZYDUS-036013

PATIENT
  Sex: Female

DRUGS (1)
  1. METOPROLOL/METOPROLOL FUMARATE/METOPROLOL SUCCINATE/METOPROLOL TARTRATE [Suspect]
     Active Substance: METOPROLOL
     Indication: HYPERTENSION
     Route: 048
     Dates: start: 20190131, end: 20190226

REACTIONS (6)
  - Dyspnoea [Unknown]
  - Blood pressure increased [Unknown]
  - Presyncope [Unknown]
  - Anxiety [Unknown]
  - Blood pressure abnormal [Unknown]
  - Drug ineffective [Unknown]

NARRATIVE: CASE EVENT DATE: 201902
